FAERS Safety Report 7115529-5 (Version None)
Quarter: 2010Q4

REPORT INFORMATION
  Report Type: 
  Country: None (occurrence: None)
  Receive Date: 20101122
  Receipt Date: 20101021
  Transmission Date: 20110411
  Serious: No
  Sender: FDA-Public Use
  Company Number: US-BAYER-201037238NA

PATIENT
  Age: 49 Year
  Sex: Female

DRUGS (2)
  1. CLIMARA PRO [Suspect]
     Indication: PRODUCT USED FOR UNKNOWN INDICATION
     Dosage: PATCH OFF FOR THE 2 WEEKS
     Route: 062
     Dates: start: 20100601
  2. ACTIVELLA [Concomitant]
     Indication: MENOPAUSAL SYMPTOMS

REACTIONS (4)
  - ABDOMINAL PAIN [None]
  - APPLICATION SITE ERYTHEMA [None]
  - APPLICATION SITE IRRITATION [None]
  - VAGINAL HAEMORRHAGE [None]
